FAERS Safety Report 16705671 (Version 1)
Quarter: 2019Q4

REPORT INFORMATION
  Report Type: Spontaneous
  Country: US (occurrence: US)
  Receive Date: 20190814
  Receipt Date: 20190814
  Transmission Date: 20200122
  Serious: Yes (Hospitalization)
  Sender: FDA-Public Use
  Company Number: None

PATIENT
  Age: 47 Year
  Sex: Female

DRUGS (9)
  1. NEOMYCIN TAB 500 MG [Concomitant]
  2. POT CL MICRO TAB 20 MEQ ER [Concomitant]
  3. ALLOPURINOL TAB 100 MG [Concomitant]
  4. LOSARTAN POT TAB 50 MG [Concomitant]
  5. OXYCODONE TAB 5 MG [Concomitant]
  6. VITAMIN D CAP 50000 UNIT [Concomitant]
  7. HUMIRA [Suspect]
     Active Substance: ADALIMUMAB
     Indication: CROHN^S DISEASE
     Dosage: ?          OTHER FREQUENCY:EVERY 2 WEEKS;?
     Route: 058
     Dates: start: 20150910
  8. METRONIDAZOLE TAB 500 MG [Concomitant]
  9. VITAMIN B12 TAB 100 MCG [Concomitant]

REACTIONS (2)
  - Therapy cessation [None]
  - Ileostomy [None]

NARRATIVE: CASE EVENT DATE: 20190801
